FAERS Safety Report 26184824 (Version 1)
Quarter: 2025Q4

REPORT INFORMATION
  Report Type: Report from Study
  Country: IN (occurrence: IN)
  Receive Date: 20251222
  Receipt Date: 20251222
  Transmission Date: 20260117
  Serious: Yes (Other)
  Sender: ASTELLAS
  Company Number: IN-ASTELLAS-2025-AER-070743

PATIENT
  Age: 60 Year
  Sex: Male

DRUGS (2)
  1. PADCEV [Suspect]
     Active Substance: ENFORTUMAB VEDOTIN-EJFV
     Indication: Transitional cell carcinoma
     Dosage: TAKING 3 VIALS OF 20 MG AND 1 VIAL OF 30 MG A TOTAL OF 90 MG
     Route: 042
     Dates: start: 20251125, end: 20251202
  2. PADCEV [Suspect]
     Active Substance: ENFORTUMAB VEDOTIN-EJFV
     Indication: Transitional cell carcinoma
     Dosage: TAKING 3 VIALS OF 20 MG AND 1 VIAL OF 30 MG A TOTAL OF 90 MG
     Route: 042
     Dates: start: 20251125, end: 20251202

REACTIONS (1)
  - Pulmonary oedema [Unknown]

NARRATIVE: CASE EVENT DATE: 20250101
